FAERS Safety Report 4281164-X (Version None)
Quarter: 2004Q1

REPORT INFORMATION
  Report Type: 
  Country: None (occurrence: None)
  Receive Date: 20040112
  Receipt Date: 20030923
  Transmission Date: 20041129
  Serious: Yes (Other)
  Sender: FDA-Public Use
  Company Number: 347818

PATIENT
  Age: 47 Year
  Sex: Male

DRUGS (1)
  1. FUZEON [Suspect]
     Indication: DRUG USE FOR UNKNOWN INDICATION
     Dosage: 1 CC 2 PER 1 DAY SUBCUTANEOUS
     Route: 058
     Dates: start: 20030814

REACTIONS (2)
  - INJECTION SITE REACTION [None]
  - SUBCUTANEOUS NODULE [None]
